FAERS Safety Report 17151505 (Version 1)
Quarter: 2019Q4

REPORT INFORMATION
  Report Type: Spontaneous
  Country: US (occurrence: US)
  Receive Date: 20191121
  Receipt Date: 20191121
  Transmission Date: 20200122
  Serious: Yes (Hospitalization)
  Sender: FDA-Public Use
  Company Number: None

PATIENT
  Sex: Female

DRUGS (1)
  1. ENBREL [Suspect]
     Active Substance: ETANERCEPT
     Indication: MULTIPLE SCLEROSIS
     Route: 058
     Dates: start: 201909

REACTIONS (7)
  - Fatigue [None]
  - Gastrointestinal hypomotility [None]
  - Back pain [None]
  - Pollakiuria [None]
  - Product substitution issue [None]
  - Paraesthesia [None]
  - Temperature intolerance [None]
